FAERS Safety Report 7111544-6 (Version None)
Quarter: 2010Q4

REPORT INFORMATION
  Report Type: 
  Country: None (occurrence: None)
  Receive Date: 20101118
  Receipt Date: 20100120
  Transmission Date: 20110411
  Serious: No
  Sender: FDA-Public Use
  Company Number: US-TEVA-222168USA

PATIENT
  Sex: Female

DRUGS (3)
  1. ALBUTEROL SULFATE AUTOHALER [Suspect]
     Dosage: 2 PUFF
     Route: 055
  2. CARISOPRODOL [Concomitant]
  3. TRIAZOLAM [Concomitant]

REACTIONS (1)
  - PRURITUS [None]
